FAERS Safety Report 5019429-6 (Version None)
Quarter: 2006Q2

REPORT INFORMATION
  Report Type: 
  Country: None (occurrence: None)
  Receive Date: 20060531
  Receipt Date: 20060523
  Transmission Date: 20061013
  Serious: Yes (Hospitalization)
  Sender: FDA-Public Use
  Company Number: DEWYE649224MAY06

PATIENT
  Age: 40 Year
  Sex: Female

DRUGS (5)
  1. TREVILOR RETARD       EXTENDED RELEASE [Suspect]
     Dosage: UNKNOWN OVERDOSE AMOUNT ORAL
     Route: 048
     Dates: start: 20060523, end: 20060523
  2. AMITRIPTYLINE HCL [Suspect]
     Dosage: UNKNOWN OVERDOSE AMOUNT ORAL
     Route: 048
     Dates: start: 20060523, end: 20060523
  3. FLUPIRTINE [Suspect]
     Dosage: UNKNOWN OVERDOSE AMOUNT ORAL
     Route: 048
     Dates: start: 20060523, end: 20060523
  4. TRAMADOL HCL [Suspect]
     Dosage: 10 ML (OVERDOSE AMOUNT 1000 MG), ORAL
     Route: 048
     Dates: start: 20060523, end: 20060523
  5. TRAMAGIT                       (TRAMADOL HYDROCHLORIDE) [Suspect]
     Dosage: 5 TABLETS (OVERDOSE AMOUNT 500 MG), ORAL
     Route: 048
     Dates: start: 20060523, end: 20060523

REACTIONS (5)
  - ASTHENIA [None]
  - MIOSIS [None]
  - MULTIPLE DRUG OVERDOSE INTENTIONAL [None]
  - SOPOR [None]
  - TACHYCARDIA [None]
